FAERS Safety Report 20527254 (Version 1)
Quarter: 2022Q1

REPORT INFORMATION
  Report Type: Report from Study
  Country: MX (occurrence: MX)
  Receive Date: 20220228
  Receipt Date: 20220228
  Transmission Date: 20220423
  Serious: Yes (Hospitalization)
  Sender: FDA-Public Use
  Company Number: MX-BIOGEN-2022BI01099550

PATIENT
  Age: 31 Year
  Sex: Female

DRUGS (1)
  1. TECFIDERA [Suspect]
     Active Substance: DIMETHYL FUMARATE
     Indication: Multiple sclerosis
     Dosage: 1 ORAL CAPSULE OF 240 MG OF TECFIDERA (DIMETHYL FUMARATE) EVERY 12 HOURS
     Route: 048
     Dates: end: 202112

REACTIONS (1)
  - Blood disorder [Recovered/Resolved]

NARRATIVE: CASE EVENT DATE: 20211201
